FAERS Safety Report 8570205-7 (Version None)
Quarter: 2012Q3

REPORT INFORMATION
  Report Type: 
  Country: None (occurrence: None)
  Receive Date: 20120803
  Receipt Date: 20120801
  Transmission Date: 20120928
  Serious: Yes (Hospitalization, Other)
  Sender: FDA-Public Use
  Company Number: PHHY2012IT066266

PATIENT
  Sex: Female

DRUGS (3)
  1. AMOXICILLIN AND CLAVULANATE POTASSIUM [Suspect]
     Indication: INFECTION
     Dosage: 1 G, QD
     Route: 048
     Dates: start: 20120624, end: 20120628
  2. RIBAVIRIN [Concomitant]
     Indication: HEPATITIS C
     Dates: start: 20110601, end: 20120616
  3. INTERFERON ALFA-2B [Concomitant]
     Indication: HEPATITIS C
     Dates: start: 20110601, end: 20120616

REACTIONS (4)
  - ERYTHEMA [None]
  - PURPURA [None]
  - PARVOVIRUS B19 TEST POSITIVE [None]
  - THROMBOCYTOPENIA [None]
